FAERS Safety Report 9229964 (Version 1)
Quarter: 2013Q2

REPORT INFORMATION
  Report Type: Spontaneous
  Country: US (occurrence: None)
  Receive Date: 20130412
  Receipt Date: 20130412
  Transmission Date: 20140414
  Serious: Yes (Other)
  Sender: FDA-Public Use
  Company Number: None

PATIENT
  Age: 40 Year
  Sex: Female
  Weight: 79.38 kg

DRUGS (1)
  1. EFFEXOR [Suspect]
     Route: 048

REACTIONS (1)
  - Ulcer haemorrhage [None]
